FAERS Safety Report 9473609 (Version 1)
Quarter: 2013Q3

REPORT INFORMATION
  Report Type: Report from Study
  Country: TR (occurrence: TR)
  Receive Date: 20130823
  Receipt Date: 20130823
  Transmission Date: 20140515
  Serious: Yes (Death)
  Sender: FDA-Public Use
  Company Number: TR-SANOFI-AVENTIS-2013SA084298

PATIENT
  Sex: 0

DRUGS (6)
  1. FLUOROURACIL [Suspect]
     Indication: ADENOCARCINOMA GASTRIC
     Route: 040
  2. FLUOROURACIL [Suspect]
     Indication: ADENOCARCINOMA GASTRIC
     Dosage: ADMINISTERED OVER 46 HOURS, EVERY 2 WEEKS CYCLE
     Route: 042
  3. CISPLATIN [Suspect]
     Indication: ADENOCARCINOMA GASTRIC
     Dosage: WITH HYDRATION ON DAY 1
     Route: 042
  4. DOCETAXEL [Suspect]
     Indication: ADENOCARCINOMA GASTRIC
     Dosage: ON DAY 1
     Route: 042
  5. LEUCOVORIN [Suspect]
     Indication: ADENOCARCINOMA GASTRIC
     Dosage: OVER 2 H ON DAY 1
     Route: 042
  6. GRANULOCYTE COLONY STIMULATING FACTOR [Concomitant]
     Indication: PROPHYLAXIS
     Dosage: ON DAYS 3,4,5,6 AND 7
     Route: 058

REACTIONS (2)
  - Pneumonia [Fatal]
  - Neutropenia [Fatal]
